FAERS Safety Report 25418627 (Version 2)
Quarter: 2025Q2

REPORT INFORMATION
  Report Type: Spontaneous
  Country: US (occurrence: US)
  Receive Date: 20250610
  Receipt Date: 20250618
  Transmission Date: 20250717
  Serious: No
  Sender: NEUROCRINE BIOSCIENCES
  Company Number: US-NEUROCRINE BIOSCIENCES INC.-2025NBI07254

PATIENT
  Age: 15 Year
  Sex: Male

DRUGS (3)
  1. CRENESSITY [Suspect]
     Active Substance: CRINECERFONT
     Indication: Adrenogenital syndrome
     Route: 065
  2. CRENESSITY [Suspect]
     Active Substance: CRINECERFONT
     Route: 065
     Dates: start: 20250518
  3. CORTEF [Concomitant]
     Active Substance: HYDROCORTISONE

REACTIONS (5)
  - Brain fog [Recovered/Resolved]
  - Heart rate increased [Recovered/Resolved]
  - Memory impairment [Recovered/Resolved]
  - Dizziness [Recovered/Resolved]
  - Headache [Recovered/Resolved]
